FAERS Safety Report 9371056 (Version 2)
Quarter: 2013Q3

REPORT INFORMATION
  Report Type: Spontaneous
  Country: US (occurrence: US)
  Receive Date: 20130627
  Receipt Date: 20130729
  Transmission Date: 20140515
  Serious: Yes (Other)
  Sender: FDA-Public Use
  Company Number: US-B.I. PHARMACEUTICALS,INC./RIDGEFIELD-2013-BI-18016BP

PATIENT
  Age: 66 Year
  Sex: Female
  Weight: 42.18 kg

DRUGS (8)
  1. COMBIVENT [Suspect]
     Indication: CHRONIC OBSTRUCTIVE PULMONARY DISEASE
     Dosage: STRENGTH: 18 MCG / 103 MCG;
     Route: 055
     Dates: start: 2009, end: 20130617
  2. COMBIVENT [Suspect]
     Indication: CHRONIC OBSTRUCTIVE PULMONARY DISEASE
     Dosage: 1 PUF
     Route: 055
     Dates: start: 20130617
  3. XOPENOX NEBULIZER [Concomitant]
     Indication: CHRONIC OBSTRUCTIVE PULMONARY DISEASE
     Dosage: 3.75 MG
     Route: 055
     Dates: start: 20130401
  4. XOPENOX NEBULIZER [Concomitant]
     Indication: ASTHMA
  5. SYMBICORT [Concomitant]
     Indication: CHRONIC OBSTRUCTIVE PULMONARY DISEASE
     Dosage: 2 PUF
     Dates: start: 20130508
  6. SYMBICORT [Concomitant]
     Indication: ASTHMA
  7. PULMICORT [Concomitant]
     Indication: CHRONIC OBSTRUCTIVE PULMONARY DISEASE
     Dosage: FORMULATION: NEB; STRENGTH: 0.5 MG/ 2 ML
     Dates: start: 20130213
  8. PULMICORT [Concomitant]
     Indication: ASTHMA

REACTIONS (7)
  - Vulval cancer [Recovered/Resolved]
  - Dyspnoea [Recovered/Resolved]
  - Chest discomfort [Recovered/Resolved]
  - Drug administration error [Recovered/Resolved]
  - Dyspnoea [Not Recovered/Not Resolved]
  - Drug administration error [Not Recovered/Not Resolved]
  - Bronchitis [Not Recovered/Not Resolved]
